FAERS Safety Report 7334387-7 (Version None)
Quarter: 2011Q1

REPORT INFORMATION
  Report Type: 
  Country: None (occurrence: None)
  Receive Date: 20110307
  Receipt Date: 20110222
  Transmission Date: 20110831
  Serious: Yes (Other)
  Sender: FDA-Public Use
  Company Number: PHHY2011AU15100

PATIENT
  Sex: Female

DRUGS (1)
  1. ACLASTA [Suspect]
     Dosage: 5 MG
     Route: 042
     Dates: start: 20110119

REACTIONS (8)
  - INFECTIOUS MONONUCLEOSIS [None]
  - OCULAR HYPERAEMIA [None]
  - BURKHOLDERIA MALLEI INFECTION [None]
  - WHEEZING [None]
  - BLISTER [None]
  - HEPATIC FUNCTION ABNORMAL [None]
  - VOMITING [None]
  - MOUTH ULCERATION [None]
